FAERS Safety Report 7206551-9 (Version None)
Quarter: 2011Q1

REPORT INFORMATION
  Report Type: 
  Country: None (occurrence: None)
  Receive Date: 20110103
  Receipt Date: 20101220
  Transmission Date: 20110831
  Serious: Yes (Other)
  Sender: FDA-Public Use
  Company Number: PHHY2010JP63629

PATIENT
  Sex: Female
  Weight: 45 kg

DRUGS (1)
  1. CO-DIOVAN [Suspect]
     Indication: HYPERTENSION
     Dosage: 1 DF, QD
     Route: 048
     Dates: start: 20100823, end: 20101001

REACTIONS (3)
  - RENAL DISORDER [None]
  - HYPERKALAEMIA [None]
  - ANAEMIA [None]
